FAERS Safety Report 6449154-6 (Version None)
Quarter: 2009Q4

REPORT INFORMATION
  Report Type: 
  Country: None (occurrence: None)
  Receive Date: 20091120
  Receipt Date: 20091118
  Transmission Date: 20100525
  Serious: Yes (Hospitalization, Disabling, Other)
  Sender: FDA-Public Use
  Company Number: US-MERCK-0607USA00823

PATIENT
  Age: 59 Year
  Sex: Female
  Weight: 127 kg

DRUGS (4)
  1. FOSAMAX [Suspect]
     Indication: OSTEOPOROSIS
     Route: 048
     Dates: start: 19961101, end: 19970101
  2. FOSAMAX [Suspect]
     Route: 048
     Dates: start: 20010901, end: 20020101
  3. FOSAMAX [Suspect]
     Route: 048
     Dates: start: 20020501, end: 20040101
  4. FOSAMAX [Suspect]
     Route: 048
     Dates: start: 19980501, end: 20010101

REACTIONS (31)
  - ABSCESS [None]
  - ANKLE FRACTURE [None]
  - ARTHRALGIA [None]
  - BLOOD CHOLESTEROL INCREASED [None]
  - CARDIAC DISORDER [None]
  - CARDIAC FAILURE CONGESTIVE [None]
  - CARPAL TUNNEL SYNDROME [None]
  - DYSPNOEA [None]
  - FALL [None]
  - FIBROUS DYSPLASIA OF BONE [None]
  - FISTULA DISCHARGE [None]
  - HYPERLIPIDAEMIA [None]
  - IMPAIRED HEALING [None]
  - INFECTION [None]
  - INSOMNIA [None]
  - JAW CYST [None]
  - LOOSE TOOTH [None]
  - LOWER LIMB FRACTURE [None]
  - MENOPAUSAL SYMPTOMS [None]
  - NEURALGIA [None]
  - OSTEOARTHRITIS [None]
  - OSTEOMYELITIS [None]
  - OSTEONECROSIS [None]
  - PAIN [None]
  - PAIN IN JAW [None]
  - POST PROCEDURAL INFECTION [None]
  - RENAL FAILURE CHRONIC [None]
  - RETINAL DETACHMENT [None]
  - RHINITIS [None]
  - SINUSITIS [None]
  - TOOTH DISORDER [None]
